FAERS Safety Report 10241836 (Version 2)
Quarter: 2014Q2

REPORT INFORMATION
  Report Type: Report from Study
  Country: US (occurrence: US)
  Receive Date: 20140617
  Receipt Date: 20140620
  Transmission Date: 20141212
  Serious: Yes (Hospitalization)
  Sender: FDA-Public Use
  Company Number: US-GLAXOSMITHKLINE-A1061781B

PATIENT
  Age: 62 Year
  Sex: Female

DRUGS (6)
  1. ELTROMBOPAG [Suspect]
     Indication: APLASTIC ANAEMIA
     Dates: start: 20140124
  2. COENZYME Q10 [Concomitant]
  3. VITAMIN D [Concomitant]
  4. NUTRITIONAL SUPPLEMENT [Concomitant]
  5. ACETAMINOPHEN [Concomitant]
  6. DIPHENYLHYDRAMINE [Concomitant]

REACTIONS (1)
  - Haemorrhage intracranial [Unknown]
